FAERS Safety Report 5877620-0 (Version None)
Quarter: 2008Q3

REPORT INFORMATION
  Report Type: 
  Country: None (occurrence: None)
  Receive Date: 20080911
  Receipt Date: 20080903
  Transmission Date: 20090109
  Serious: Yes (Other)
  Sender: FDA-Public Use
  Company Number: US-BAYER-200832651NA

PATIENT
  Age: 32 Year
  Sex: Female

DRUGS (1)
  1. CLIMARA [Suspect]
     Indication: DRUG USE FOR UNKNOWN INDICATION
     Route: 062

REACTIONS (11)
  - AMNESIA [None]
  - ANOREXIA [None]
  - ARTHRALGIA [None]
  - BLOOD PRESSURE SYSTOLIC INCREASED [None]
  - CHEST PAIN [None]
  - FUNGAL INFECTION [None]
  - HEADACHE [None]
  - MOOD ALTERED [None]
  - PAIN IN EXTREMITY [None]
  - VAGINAL DISCHARGE [None]
  - VISION BLURRED [None]
